FAERS Safety Report 6644240-X (Version None)
Quarter: 2010Q1

REPORT INFORMATION
  Report Type: 
  Country: None (occurrence: None)
  Receive Date: 20100322
  Receipt Date: 20100317
  Transmission Date: 20100710
  Serious: Yes (Hospitalization)
  Sender: FDA-Public Use
  Company Number: JP-SANOFI-AVENTIS-2010SA015720

PATIENT
  Age: 73 Year
  Sex: Female
  Weight: 38 kg

DRUGS (7)
  1. CLEXANE [Suspect]
     Indication: CHOLELITHOTOMY
     Route: 058
     Dates: start: 20100130, end: 20100203
  2. TANATRIL ^TANABE^ [Concomitant]
     Route: 048
     Dates: start: 20100202
  3. EVISTA [Concomitant]
     Route: 048
     Dates: start: 20100202
  4. PRAVASTATIN SODIUM [Concomitant]
     Route: 048
     Dates: start: 20100202
  5. LOXOPROFEN [Concomitant]
     Route: 048
     Dates: start: 20100204, end: 20100204
  6. MUCOSTA [Concomitant]
     Route: 048
     Dates: start: 20100204, end: 20100204
  7. AMPICILLIN SODIUM/SULBACTAM SODIUM [Concomitant]
     Indication: INFECTION PROPHYLAXIS
     Dates: start: 20100129, end: 20100131

REACTIONS (1)
  - HEPATIC FUNCTION ABNORMAL [None]
